FAERS Safety Report 12042906 (Version 1)
Quarter: 2016Q1

REPORT INFORMATION
  Report Type: Spontaneous
  Country: US (occurrence: US)
  Receive Date: 20160208
  Receipt Date: 20160208
  Transmission Date: 20160526
  Serious: Yes (Hospitalization)
  Sender: FDA-Public Use
  Company Number: US-MYLANLABS-2016M1004745

PATIENT

DRUGS (3)
  1. VORICONAZOLE. [Suspect]
     Active Substance: VORICONAZOLE
     Indication: ASPERGILLUS INFECTION
     Dates: start: 201209
  2. VORICONAZOLE. [Suspect]
     Active Substance: VORICONAZOLE
     Route: 048
     Dates: start: 201209
  3. MICAFUNGIN [Concomitant]
     Active Substance: MICAFUNGIN
     Indication: PRODUCT USED FOR UNKNOWN INDICATION
     Route: 042

REACTIONS (3)
  - Photoonycholysis [Recovering/Resolving]
  - Pseudoporphyria [Recovering/Resolving]
  - Photosensitivity reaction [Recovering/Resolving]
